FAERS Safety Report 18759522 (Version 8)
Quarter: 2022Q2

REPORT INFORMATION
  Report Type: Report from Study
  Country: CA (occurrence: CA)
  Receive Date: 20210119
  Receipt Date: 20220401
  Transmission Date: 20220721
  Serious: Yes (Other)
  Sender: FDA-Public Use
  Company Number: CA-TAKEDA-CA202029322

PATIENT
  Age: 67 Year
  Sex: Female

DRUGS (23)
  1. ICATIBANT [Suspect]
     Active Substance: ICATIBANT ACETATE
     Indication: Hereditary angioedema
     Dosage: 30 MILLIGRAM
     Route: 065
     Dates: start: 20170929
  2. ICATIBANT [Suspect]
     Active Substance: ICATIBANT ACETATE
     Indication: Hereditary angioedema
     Dosage: 30 MILLIGRAM
     Route: 065
     Dates: start: 20170929
  3. ICATIBANT [Suspect]
     Active Substance: ICATIBANT ACETATE
     Dosage: UNK
     Route: 065
     Dates: start: 20170929
  4. ICATIBANT [Suspect]
     Active Substance: ICATIBANT ACETATE
     Dosage: UNK
     Route: 065
     Dates: start: 20170929
  5. ICATIBANT [Suspect]
     Active Substance: ICATIBANT ACETATE
     Dosage: 30 MILLIGRAM
     Route: 065
     Dates: start: 20170929
  6. ICATIBANT [Suspect]
     Active Substance: ICATIBANT ACETATE
     Dosage: 30 MILLIGRAM
     Route: 065
     Dates: start: 20170929
  7. ICATIBANT [Suspect]
     Active Substance: ICATIBANT ACETATE
     Dosage: 30 MILLIGRAM
     Route: 058
     Dates: start: 20170929
  8. ICATIBANT [Suspect]
     Active Substance: ICATIBANT ACETATE
     Dosage: 30 MILLIGRAM
     Route: 058
     Dates: start: 20170929
  9. BERINERT [Concomitant]
     Active Substance: HUMAN C1-ESTERASE INHIBITOR
     Indication: Product used for unknown indication
     Dosage: 6 MILLILITER, 2/WEEK
     Route: 058
     Dates: start: 20170901, end: 20180108
  10. BERINERT [Concomitant]
     Active Substance: HUMAN C1-ESTERASE INHIBITOR
     Dosage: 6 MILLILITER, 4/WEEK
     Route: 058
     Dates: start: 20180111
  11. DANAZOL [Concomitant]
     Active Substance: DANAZOL
     Indication: Product used for unknown indication
     Dosage: 5 MILLIGRAM, 2 TO 3 CAPSULES A DAY
     Route: 065
     Dates: start: 19900101
  12. DANAZOL [Concomitant]
     Active Substance: DANAZOL
     Dosage: 5 MILLIGRAM, 2 TO 3 CAPSULES A DAY
     Route: 065
     Dates: start: 19900101, end: 20171221
  13. CYCLOBENZAPRINE [Concomitant]
     Active Substance: CYCLOBENZAPRINE
     Dosage: 10 MILLIGRAM
     Route: 065
  14. RIMSO-50 [Concomitant]
     Active Substance: DIMETHYL SULFOXIDE
     Dosage: 500 MILLIGRAM PER GRAM
     Route: 065
  15. PMS DOCUSATE SODIUM [Concomitant]
     Dosage: 100 MILLIGRAM
     Route: 065
  16. AMLODIPINE BESYLATE [Concomitant]
     Active Substance: AMLODIPINE BESYLATE
     Dosage: 5 MILLIGRAM, QD
     Route: 065
  17. PMS CELECOXIB [Concomitant]
     Dosage: 200 MILLIGRAM
     Route: 065
  18. HYDROCHLOROTHIAZIDE [Concomitant]
     Active Substance: HYDROCHLOROTHIAZIDE
     Dosage: 25 MILLIGRAM
     Route: 065
  19. DULOXETINE [Concomitant]
     Active Substance: DULOXETINE
     Dosage: 60 MILLIGRAM
     Route: 065
  20. JAMP SENNA S [Concomitant]
     Dosage: 8.6 MILLIGRAM
     Route: 065
  21. ELMIRON [Concomitant]
     Active Substance: PENTOSAN POLYSULFATE SODIUM
     Dosage: 100 MILLIGRAM
     Route: 065
  22. DEXILANT [Concomitant]
     Active Substance: DEXLANSOPRAZOLE
     Dosage: 30 MILLIGRAM
     Route: 065
  23. CALTRATE [Concomitant]
     Active Substance: CALCIUM CARBONATE
     Dosage: UNK
     Route: 065

REACTIONS (12)
  - Breast cancer [Not Recovered/Not Resolved]
  - Stress [Unknown]
  - Rash [Recovered/Resolved]
  - Back pain [Unknown]
  - Tendonitis [Unknown]
  - Musculoskeletal chest pain [Recovered/Resolved]
  - Cough [Recovered/Resolved]
  - Pain in extremity [Unknown]
  - Peripheral swelling [Unknown]
  - Fatigue [Recovered/Resolved]
  - Pregnancy [Recovered/Resolved]
  - Breast feeding [Unknown]

NARRATIVE: CASE EVENT DATE: 20210121
